FAERS Safety Report 8772574 (Version 1)
Quarter: 2012Q4

REPORT INFORMATION
  Report Type: 
  Country: US (occurrence: US)
  Receive Date: 20120905
  Receipt Date: 20120905
  Transmission Date: 20130627
  Serious: No
  Sender: FDA-Public Use
  Company Number: US-009507513-1208USA009036

PATIENT

DRUGS (3)
  1. MIRALAX [Suspect]
     Indication: CONSTIPATION
     Dosage: UNK, qpm
     Route: 048
     Dates: start: 20120724
  2. MIRALAX [Suspect]
     Indication: MEDICAL OBSERVATION
  3. SENNA [Concomitant]
     Indication: PRODUCT USED FOR UNKNOWN INDICATION
     Dosage: UNK, Unknown
     Route: 065
     Dates: end: 20120731

REACTIONS (2)
  - Frequent bowel movements [Not Recovered/Not Resolved]
  - Incorrect drug administration duration [Unknown]
